FAERS Safety Report 5212409-7 (Version None)
Quarter: 2007Q1

REPORT INFORMATION
  Report Type: 
  Country: None (occurrence: None)
  Receive Date: 20070118
  Receipt Date: 20070108
  Transmission Date: 20070707
  Serious: Yes (Hospitalization, Other)
  Sender: FDA-Public Use
  Company Number: AU-PFIZER INC-2006152561

PATIENT

DRUGS (4)
  1. LYRICA [Suspect]
  2. TRAMADOL HCL [Interacting]
  3. SSRI [Interacting]
  4. ALL OTHER THERAPEUTIC PRODUCTS [Concomitant]

REACTIONS (3)
  - DRUG INTERACTION [None]
  - INFECTION [None]
  - PYREXIA [None]
